FAERS Safety Report 6568785-6 (Version None)
Quarter: 2010Q1

REPORT INFORMATION
  Report Type: 
  Country: None (occurrence: None)
  Receive Date: 20100128
  Receipt Date: 20100118
  Transmission Date: 20100710
  Serious: Yes (Hospitalization)
  Sender: FDA-Public Use
  Company Number: 2010SP002087

PATIENT
  Sex: Female

DRUGS (2)
  1. NUVARING [Suspect]
     Indication: AMENORRHOEA
     Dosage: 1 DF; VAG,  1 DF; OTHER
     Route: 067
     Dates: start: 20090901, end: 20091227
  2. NUVARING [Suspect]
     Indication: AMENORRHOEA
     Dosage: 1 DF; VAG,  1 DF; OTHER
     Route: 067
     Dates: start: 20080201

REACTIONS (5)
  - CYSTITIS [None]
  - FOREIGN BODY [None]
  - INCORRECT ROUTE OF DRUG ADMINISTRATION [None]
  - OVERDOSE [None]
  - PAIN [None]
